FAERS Safety Report 6068930-5 (Version None)
Quarter: 2009Q1

REPORT INFORMATION
  Report Type: 
  Country: None (occurrence: None)
  Receive Date: 20090206
  Receipt Date: 20090128
  Transmission Date: 20090719
  Serious: Yes (Disabling)
  Sender: FDA-Public Use
  Company Number: JP-SANOFI-SYNTHELABO-A01200900853

PATIENT
  Sex: Male
  Weight: 65 kg

DRUGS (8)
  1. MAGNESIUM OXIDE [Concomitant]
     Dates: start: 20080611
  2. ACTOS [Concomitant]
  3. MEVALOTIN [Concomitant]
  4. NORVASC [Concomitant]
  5. AVASTIN [Suspect]
     Indication: COLON CANCER
     Route: 041
     Dates: start: 20080930, end: 20080930
  6. FLUOROURACIL [Suspect]
     Indication: COLON CANCER
     Route: 041
     Dates: start: 20081002, end: 20081004
  7. ELPLAT [Suspect]
     Indication: COLON CANCER
     Route: 041
     Dates: start: 20081002, end: 20081002
  8. FERO-GRADUMET [Concomitant]

REACTIONS (2)
  - GASTROINTESTINAL PERFORATION [None]
  - HICCUPS [None]
